FAERS Safety Report 7200331-6 (Version None)
Quarter: 2010Q4

REPORT INFORMATION
  Report Type: 
  Country: None (occurrence: None)
  Receive Date: 20101214
  Receipt Date: 20101209
  Transmission Date: 20110411
  Serious: Yes (Other)
  Sender: FDA-Public Use
  Company Number: 2010S1000396

PATIENT
  Age: 56 Year
  Sex: Female

DRUGS (1)
  1. DARVOCET-N 100 [Suspect]
     Indication: FIBROMYALGIA
     Dosage: 100 MG; BID; PO
     Route: 048
     Dates: end: 20101201

REACTIONS (2)
  - CARDIAC DISORDER [None]
  - STAPHYLOCOCCAL INFECTION [None]
